FAERS Safety Report 18543850 (Version 1)
Quarter: 2020Q4

REPORT INFORMATION
  Report Type: Other
  Country: JP (occurrence: JP)
  Receive Date: 20201125
  Receipt Date: 20201125
  Transmission Date: 20210114
  Serious: Yes (Other)
  Sender: FDA-Public Use
  Company Number: JP-ROCHE-2717156

PATIENT
  Age: 34 Year
  Sex: Female

DRUGS (7)
  1. GEMCITABINE. [Suspect]
     Active Substance: GEMCITABINE
     Indication: ADRENOCORTICAL CARCINOMA
     Dosage: ON DAYS 1 AND 8
     Route: 065
  2. PREDNISOLONE. [Concomitant]
     Active Substance: PREDNISOLONE
     Route: 048
  3. CAPECITABINE. [Suspect]
     Active Substance: CAPECITABINE
     Indication: ADRENOCORTICAL CARCINOMA
     Dosage: 1500 MG/BODY
     Route: 065
  4. ETOPOSIDE. [Concomitant]
     Active Substance: ETOPOSIDE
     Dosage: ON DAYS 2-4,
     Route: 065
  5. DOXORUBICIN [Concomitant]
     Active Substance: DOXORUBICIN
     Dosage: ON DAYS 1
     Route: 065
  6. MITOTANE [Suspect]
     Active Substance: MITOTANE
     Indication: ADRENOCORTICAL CARCINOMA
     Dosage: ON DAYS 1 AND 8
     Route: 048
  7. CISPLATIN. [Concomitant]
     Active Substance: CISPLATIN
     Dosage: ON DAYS 3 AND 4

REACTIONS (3)
  - Asthenia [Unknown]
  - Neutropenia [Recovered/Resolved]
  - Hyponatraemia [Unknown]
